FAERS Safety Report 5834516-8 (Version None)
Quarter: 2008Q3

REPORT INFORMATION
  Report Type: 
  Country: None (occurrence: None)
  Receive Date: 20080805
  Receipt Date: 20080724
  Transmission Date: 20090109
  Serious: Yes (Other)
  Sender: FDA-Public Use
  Company Number: BE-PFIZER INC-2008062073

PATIENT
  Age: 59 Year
  Sex: Female

DRUGS (1)
  1. MYCOBUTIN [Suspect]

REACTIONS (1)
  - JAUNDICE [None]
